FAERS Safety Report 21538698 (Version 1)
Quarter: 2022Q4

REPORT INFORMATION
  Report Type: Spontaneous
  Country: US (occurrence: US)
  Receive Date: 20221102
  Receipt Date: 20221102
  Transmission Date: 20230113
  Serious: No
  Sender: FDA-Public Use
  Company Number: US-BRISTOL-MYERS SQUIBB COMPANY-2022-130671

PATIENT
  Age: 44 Year
  Sex: Female
  Weight: 78 kg

DRUGS (1)
  1. ORENCIA [Suspect]
     Active Substance: ABATACEPT
     Indication: Rheumatoid arthritis
     Route: 058
     Dates: start: 202208

REACTIONS (3)
  - Dysgeusia [Unknown]
  - Oral pain [Unknown]
  - Stomatitis [Unknown]

NARRATIVE: CASE EVENT DATE: 20220801
